FAERS Safety Report 7818058-6 (Version None)
Quarter: 2011Q4

REPORT INFORMATION
  Report Type: 
  Country: None (occurrence: None)
  Receive Date: 20111017
  Receipt Date: 20111011
  Transmission Date: 20120403
  Serious: Yes (Other)
  Sender: FDA-Public Use
  Company Number: US-PFIZER INC-2011243273

PATIENT
  Sex: Female
  Weight: 90.703 kg

DRUGS (3)
  1. TYLENOL-500 [Concomitant]
     Dosage: UNK, AS NEEDED
  2. PRISTIQ [Suspect]
     Indication: DEPRESSION
     Dosage: 50 MG, 1X/DAY
     Route: 048
     Dates: start: 20100701, end: 20101001
  3. EFFEXOR [Suspect]
     Indication: DEPRESSION
     Dosage: UNK
     Route: 048
     Dates: start: 20070101, end: 20070101

REACTIONS (2)
  - WITHDRAWAL SYNDROME [None]
  - SUICIDAL IDEATION [None]
